FAERS Safety Report 16497337 (Version 1)
Quarter: 2019Q2

REPORT INFORMATION
  Report Type: Spontaneous
  Country: US (occurrence: US)
  Receive Date: 20190628
  Receipt Date: 20190628
  Transmission Date: 20190711
  Serious: Yes (Other)
  Sender: FDA-Public Use
  Company Number: US-ELI_LILLY_AND_COMPANY-US201906009827

PATIENT
  Sex: Female

DRUGS (3)
  1. HUMULIN N [Suspect]
     Active Substance: INSULIN HUMAN
     Indication: TYPE 2 DIABETES MELLITUS
  2. HUMULIN R [Suspect]
     Active Substance: INSULIN HUMAN
     Indication: TYPE 2 DIABETES MELLITUS
     Dosage: 30 U, UNKNOWN
     Route: 058
  3. PIOGLITAZONE. [Concomitant]
     Active Substance: PIOGLITAZONE
     Indication: TYPE 2 DIABETES MELLITUS

REACTIONS (7)
  - Macular oedema [Unknown]
  - Glycosylated haemoglobin increased [Not Recovered/Not Resolved]
  - Chronic kidney disease [Unknown]
  - Obesity [Not Recovered/Not Resolved]
  - Cardiac disorder [Unknown]
  - Diabetic retinopathy [Unknown]
  - Diabetes mellitus inadequate control [Not Recovered/Not Resolved]
